FAERS Safety Report 6003462-1 (Version None)
Quarter: 2008Q4

REPORT INFORMATION
  Report Type: 
  Country: None (occurrence: None)
  Receive Date: 20081215
  Receipt Date: 20081215
  Transmission Date: 20090506
  Serious: No
  Sender: FDA-Public Use
  Company Number: None

PATIENT
  Age: 60 Year
  Sex: Female
  Weight: 99.7913 kg

DRUGS (1)
  1. LEVAQUIN [Suspect]
     Indication: RESPIRATORY TRACT INFECTION
     Dosage: 5 1 DAILY
     Dates: start: 20080903, end: 20080908

REACTIONS (7)
  - ARTHRALGIA [None]
  - GRIP STRENGTH DECREASED [None]
  - INADEQUATE ANALGESIA [None]
  - JOINT CREPITATION [None]
  - JOINT RANGE OF MOTION DECREASED [None]
  - PAIN IN EXTREMITY [None]
  - TENDONITIS [None]
